FAERS Safety Report 7608324-1 (Version None)
Quarter: 2011Q3

REPORT INFORMATION
  Report Type: 
  Country: None (occurrence: None)
  Receive Date: 20110713
  Receipt Date: 20110713
  Transmission Date: 20111222
  Serious: Yes (Other)
  Sender: FDA-Public Use
  Company Number: None

PATIENT
  Sex: Male

DRUGS (1)
  1. TRIAD ALCOHOL PADS [Suspect]
     Indication: INJECTION

REACTIONS (5)
  - INJECTION SITE RASH [None]
  - NO THERAPEUTIC RESPONSE [None]
  - UPPER RESPIRATORY TRACT INFECTION [None]
  - INJECTION SITE PRURITUS [None]
  - INJECTION SITE VESICLES [None]
